FAERS Safety Report 24283283 (Version 2)
Quarter: 2024Q3

REPORT INFORMATION
  Report Type: Spontaneous
  Country: US (occurrence: US)
  Receive Date: 20240904
  Receipt Date: 20240916
  Transmission Date: 20241017
  Serious: No
  Sender: NX DEVELOPMENT CORPORATION
  Company Number: US-NXDC-2024GLE00064

PATIENT

DRUGS (1)
  1. GLEOLAN [Suspect]
     Active Substance: AMINOLEVULINIC ACID HYDROCHLORIDE
     Indication: Glioma
     Route: 048

REACTIONS (1)
  - Vitreous floaters [Unknown]
